FAERS Safety Report 6986606-4 (Version None)
Quarter: 2010Q3

REPORT INFORMATION
  Report Type: 
  Country: None (occurrence: None)
  Receive Date: 20100915
  Receipt Date: 20090817
  Transmission Date: 20110219
  Serious: No
  Sender: FDA-Public Use
  Company Number: US-WYE-H10207109

PATIENT
  Sex: Female
  Weight: 86.26 kg

DRUGS (5)
  1. PRISTIQ [Suspect]
     Indication: DEPRESSION
     Route: 048
     Dates: start: 20090701
  2. LOVASTATIN [Concomitant]
  3. DILTIAZEM [Concomitant]
  4. LISINOPRIL [Suspect]
  5. XANAX [Concomitant]

REACTIONS (1)
  - COUGH [None]
